FAERS Safety Report 18058004 (Version 2)
Quarter: 2020Q4

REPORT INFORMATION
  Report Type: Spontaneous
  Country: DE (occurrence: DE)
  Receive Date: 20200723
  Receipt Date: 20201001
  Transmission Date: 20210113
  Serious: Yes (Hospitalization, Other)
  Sender: FDA-Public Use
  Company Number: DE-AUROBINDO-AUR-APL-2020-026662

PATIENT
  Sex: Male

DRUGS (1)
  1. VALSARTAN AUROBINDO, FILM-COATED TABLETS 80MG [Suspect]
     Active Substance: VALSARTAN
     Indication: HYPERTENSION
     Dosage: 1 DOSAGE FORM, DAILY
     Route: 048
     Dates: start: 20170201

REACTIONS (15)
  - Chest discomfort [Unknown]
  - Disturbance in attention [Unknown]
  - Impaired quality of life [Unknown]
  - Headache [Unknown]
  - Dizziness [Unknown]
  - Panic attack [Unknown]
  - Hyperhidrosis [Unknown]
  - Anxiety [Unknown]
  - Abdominal discomfort [Unknown]
  - Feeling abnormal [Unknown]
  - Anxiety disorder [Unknown]
  - Palpitations [Unknown]
  - Asthenia [Unknown]
  - Dyspnoea [Unknown]
  - Hypertension [Unknown]

NARRATIVE: CASE EVENT DATE: 20200317
